FAERS Safety Report 8387557 (Version 3)
Quarter: 2013Q1

REPORT INFORMATION
  Report Type: Spontaneous
  Country: US (occurrence: US)
  Receive Date: 20120202
  Receipt Date: 20130109
  Transmission Date: 20140127
  Serious: Yes (Hospitalization)
  Sender: FDA-Public Use
  Company Number: US-ASTRAZENECA-2012SE05910

PATIENT
  Age: 66 Year
  Sex: Female

DRUGS (15)
  1. SEROQUEL XR [Suspect]
     Indication: BIPOLAR DISORDER
     Route: 048
     Dates: start: 20120118, end: 20120125
  2. SEROQUEL XR [Suspect]
     Indication: PSYCHOTIC DISORDER
     Route: 048
     Dates: start: 20120118, end: 20120125
  3. SEROQUEL XR [Suspect]
     Indication: BIPOLAR DISORDER
     Dosage: 3 HOURS BEFORE BEDTIME
     Route: 048
     Dates: start: 20120118
  4. SEROQUEL XR [Suspect]
     Indication: PSYCHOTIC DISORDER
     Dosage: 3 HOURS BEFORE BEDTIME
     Route: 048
     Dates: start: 20120118
  5. SIMVASTATIN [Suspect]
     Route: 065
     Dates: end: 20120125
  6. OMEPRAZOLE [Concomitant]
  7. ALLOPURINOL [Concomitant]
  8. AMLODIPINE [Concomitant]
  9. ASPIRIN [Concomitant]
  10. BUPROPRION [Concomitant]
  11. COLACE [Concomitant]
  12. DOMEPIZE [Concomitant]
  13. FENTANYL PATCH [Concomitant]
  14. MAGNESIUM [Concomitant]
  15. PARICOCALIPOL [Concomitant]

REACTIONS (2)
  - Mental status changes [Recovered/Resolved]
  - Drug-induced liver injury [Recovered/Resolved]
